FAERS Safety Report 15243661 (Version 2)
Quarter: 2018Q3

REPORT INFORMATION
  Report Type: Spontaneous
  Country: BG (occurrence: BG)
  Receive Date: 20180806
  Receipt Date: 20180808
  Transmission Date: 20181010
  Serious: Yes (Life-Threatening, Hospitalization)
  Sender: FDA-Public Use
  Company Number: BG-BAXTER-2018BAX020380

PATIENT
  Age: 59 Year
  Sex: Female

DRUGS (1)
  1. SODIUM CHLORIDE BAXTER 0,9% SOLUTION FOR INFUSION [Suspect]
     Active Substance: SODIUM CHLORIDE
     Indication: PRODUCT USED FOR UNKNOWN INDICATION
     Dosage: 500 ML DAILY
     Route: 065
     Dates: start: 20180703, end: 20180707

REACTIONS (4)
  - Cyanosis [Recovering/Resolving]
  - Condition aggravated [Recovering/Resolving]
  - Tremor [Recovering/Resolving]
  - Pyrexia [Recovering/Resolving]

NARRATIVE: CASE EVENT DATE: 20180703
